FAERS Safety Report 9274435 (Version 2)
Quarter: 2013Q2

REPORT INFORMATION
  Report Type: Spontaneous
  Country: GB (occurrence: GB)
  Receive Date: 20130506
  Receipt Date: 20130509
  Transmission Date: 20140414
  Serious: Yes (Other)
  Sender: FDA-Public Use
  Company Number: GB-MERCK-1305GBR001465

PATIENT
  Age: 65 Year
  Sex: Male
  Weight: 84 kg

DRUGS (5)
  1. JANUVIA [Suspect]
     Indication: BLOOD GLUCOSE INCREASED
     Dosage: 100 MG, UNK
     Route: 048
     Dates: start: 20130308, end: 20130421
  2. ATENOLOL [Concomitant]
  3. DOXAZOSIN MESYLATE [Concomitant]
  4. GLIMEPIRIDE [Concomitant]
  5. METFORMIN HYDROCHLORIDE [Concomitant]

REACTIONS (6)
  - Weight increased [Recovering/Resolving]
  - Mental impairment [Recovering/Resolving]
  - Anger [Recovering/Resolving]
  - Dizziness [Recovering/Resolving]
  - Fatigue [Recovering/Resolving]
  - Headache [Recovering/Resolving]
